FAERS Safety Report 9527594 (Version 1)
Quarter: 2013Q1

REPORT INFORMATION
  Report Type: Spontaneous
  Country: US (occurrence: None)
  Receive Date: 20130314
  Receipt Date: 20130314
  Transmission Date: 20140127
  Serious: No
  Sender: FDA-Public Use
  Company Number: 1212USA009284

PATIENT
  Age: 62 Year
  Sex: Female

DRUGS (3)
  1. VICTRELIS (BOCEPREVIR) CAPSULE, 200MG [Suspect]
     Dosage: 800 MG, TID, ORAL
     Route: 048
     Dates: start: 20121203
  2. PEGINTRON (PEGINTERFERON ALFA-2B) POWDER FOR INJECTION [Suspect]
     Indication: HEPATITIS C
     Dosage: 80 MICROGRAM, QW, SUBCUTANEOUS
     Route: 058
     Dates: start: 20121101
  3. RIBASPHERE (RIBAVIRIN) [Suspect]

REACTIONS (3)
  - Fatigue [None]
  - Decreased appetite [None]
  - Depression [None]
